FAERS Safety Report 22006643 (Version 1)
Quarter: 2023Q1

REPORT INFORMATION
  Report Type: Other
  Country: None (occurrence: JP)
  Receive Date: 20230217
  Receipt Date: 20230217
  Transmission Date: 20230417
  Serious: Yes (Hospitalization, Other)
  Sender: FDA-Public Use
  Company Number: JP-Spectra Medical Devices, LLC-2138075

PATIENT
  Age: 68 Year
  Sex: Male

DRUGS (1)
  1. SODIUM CHLORIDE [Suspect]
     Active Substance: SODIUM CHLORIDE
     Indication: Hyponatraemia
     Route: 048

REACTIONS (2)
  - Cardiac failure [Recovered/Resolved]
  - Ascites [Recovered/Resolved]
